FAERS Safety Report 6346230-3 (Version None)
Quarter: 2009Q3

REPORT INFORMATION
  Report Type: 
  Country: None (occurrence: None)
  Receive Date: 20090909
  Receipt Date: 20090902
  Transmission Date: 20100115
  Serious: Yes (Hospitalization)
  Sender: FDA-Public Use
  Company Number: PHEH2009US10227

PATIENT
  Age: 70 Year
  Sex: Female
  Weight: 90.703 kg

DRUGS (4)
  1. TEKTURNA HCT [Suspect]
     Indication: HYPERTENSION
     Dosage: 300/12.5 MG, QD
     Dates: start: 20090828
  2. BYSTOLIC [Suspect]
     Dosage: UNK, UNK
  3. CLONIDINE [Suspect]
     Dosage: UNK, UHK
  4. CLONIDINE [Suspect]
     Dosage: UNK, UNK

REACTIONS (3)
  - CONFUSIONAL STATE [None]
  - MALIGNANT HYPERTENSION [None]
  - WITHDRAWAL HYPERTENSION [None]
